FAERS Safety Report 22196317 (Version 4)
Quarter: 2023Q2

REPORT INFORMATION
  Report Type: Spontaneous
  Country: JP (occurrence: JP)
  Receive Date: 20230411
  Receipt Date: 20230522
  Transmission Date: 20230721
  Serious: Yes (Other)
  Sender: FDA-Public Use
  Company Number: JP-GSKNCCC-Case-01705150_AE-69374

PATIENT

DRUGS (2)
  1. BENLYSTA [Suspect]
     Active Substance: BELIMUMAB
     Indication: Systemic lupus erythematosus
     Dosage: UNK
     Route: 058
     Dates: start: 20230111
  2. BENLYSTA [Suspect]
     Active Substance: BELIMUMAB
     Indication: Eczema

REACTIONS (6)
  - Systemic lupus erythematosus [Unknown]
  - Eczema [Unknown]
  - Condition aggravated [Unknown]
  - Injection site pain [Unknown]
  - Device infusion issue [Unknown]
  - Product dose omission issue [Unknown]

NARRATIVE: CASE EVENT DATE: 20230329
